FAERS Safety Report 4457746-9 (Version None)
Quarter: 2004Q3

REPORT INFORMATION
  Report Type: 
  Country: None (occurrence: None)
  Receive Date: 20040831
  Receipt Date: 20040618
  Transmission Date: 20050211
  Serious: No
  Sender: FDA-Public Use
  Company Number: FABR-10656

PATIENT
  Age: 8 Year
  Sex: Male
  Weight: 29.5 kg

DRUGS (1)
  1. FABRAZYME [Suspect]
     Indication: FABRY'S DISEASE
     Dosage: 35 MG Q2WKS IV
     Route: 042
     Dates: start: 20040224

REACTIONS (5)
  - BACK PAIN [None]
  - HEADACHE [None]
  - LETHARGY [None]
  - PARAESTHESIA [None]
  - PYREXIA [None]
